FAERS Safety Report 9290575 (Version 1)
Quarter: 2013Q2

REPORT INFORMATION
  Report Type: Spontaneous
  Country: NL (occurrence: NL)
  Receive Date: 20130515
  Receipt Date: 20130515
  Transmission Date: 20140414
  Serious: Yes (Hospitalization)
  Sender: FDA-Public Use
  Company Number: NL-ELI_LILLY_AND_COMPANY-NL201305002580

PATIENT
  Age: 23 Year
  Sex: Male

DRUGS (3)
  1. ZYPADHERA [Suspect]
     Indication: BIPOLAR DISORDER
     Dosage: 300 MG, 2/M
     Dates: start: 20130103
  2. ZYPADHERA [Suspect]
     Dosage: 405 MG, 2/M
     Dates: start: 20130114
  3. MARIJUANA [Concomitant]
     Dosage: 1 DF, QD

REACTIONS (4)
  - Mania [Unknown]
  - Neutrophil count decreased [Unknown]
  - Drug ineffective [Not Recovered/Not Resolved]
  - Prescribed overdose [Unknown]
